FAERS Safety Report 22098873 (Version 1)
Quarter: 2023Q1

REPORT INFORMATION
  Report Type: Spontaneous
  Country: CN (occurrence: CN)
  Receive Date: 20230315
  Receipt Date: 20230315
  Transmission Date: 20230418
  Serious: Yes (Hospitalization, Other)
  Sender: FDA-Public Use
  Company Number: CN-009507513-2303CHN002682

PATIENT
  Age: 93 Year
  Sex: Female
  Weight: 46 kg

DRUGS (2)
  1. INVANZ [Suspect]
     Active Substance: ERTAPENEM SODIUM
     Indication: Pneumonia
     Dosage: 1 GRAM, EVERY DAY
     Route: 041
     Dates: start: 20230212, end: 20230217
  2. SODIUM CHLORIDE [Concomitant]
     Active Substance: SODIUM CHLORIDE
     Indication: Pneumonia
     Dosage: 0.9%, 100 MILLILITER, EVERY DAY
     Route: 041
     Dates: start: 20230212, end: 20230217

REACTIONS (2)
  - Epilepsy [Recovered/Resolved]
  - Blood pressure decreased [Recovered/Resolved]

NARRATIVE: CASE EVENT DATE: 20230217
